FAERS Safety Report 16766878 (Version 2)
Quarter: 2019Q4

REPORT INFORMATION
  Report Type: Spontaneous
  Country: US (occurrence: US)
  Receive Date: 20190903
  Receipt Date: 20191017
  Transmission Date: 20200122
  Serious: No
  Sender: FDA-Public Use
  Company Number: US-PFIZER INC-2019372182

PATIENT
  Age: 63 Year
  Sex: Female

DRUGS (29)
  1. RELPAX [Suspect]
     Active Substance: ELETRIPTAN HYDROBROMIDE
     Indication: MIGRAINE
     Dosage: 40 MG, 1X/DAY (AS NEEDED)
     Route: 048
  2. VYVANSE [Concomitant]
     Active Substance: LISDEXAMFETAMINE DIMESYLATE
     Dosage: 70 MG, 1X/DAY (TAKE 1 CAPSULE (70 MG TOTAL) BY MOUTH EVERY MORNING)
     Route: 048
     Dates: start: 20190929
  3. FLEXERIL [Concomitant]
     Active Substance: CYCLOBENZAPRINE HYDROCHLORIDE
     Indication: MUSCLE SPASMS
     Dosage: 10 MG, AS NEEDED (TAKE 1 TABLET BY MOUTH THREE TIMES A DAY AS NEEDED)
     Route: 048
     Dates: start: 20190821
  4. PHENERGAN [Concomitant]
     Active Substance: PROMETHAZINE HYDROCHLORIDE
     Indication: NAUSEA
     Dosage: 25 MG, AS NEEDED (TAKE 1 TABLET (25 MG TOTAL) BY MOUTH EVERY 6 (SIX) HOURS AS NEEDED)
     Route: 048
     Dates: start: 20190409
  5. TYLENOL [Concomitant]
     Active Substance: ACETAMINOPHEN
     Indication: ARTHRALGIA
     Dosage: 650 MG, AS NEEDED (650 MG BY MOUTH EVERY 6 (SIX) HOURS)
     Route: 048
  6. NORCO [Concomitant]
     Active Substance: ACETAMINOPHEN\HYDROCODONE BITARTRATE
     Indication: PAIN
     Dosage: 1 DF, AS NEEDED(TAKE 1 TABLET BY MOUTH DAILY AS NEEDED) (5-325 MG PER TABLET)
     Route: 048
     Dates: start: 20190911, end: 20191011
  7. SINGULAIR [Concomitant]
     Active Substance: MONTELUKAST SODIUM
     Dosage: 10 MG, DAILY
     Route: 048
     Dates: start: 20190712
  8. CRESTOR [Concomitant]
     Active Substance: ROSUVASTATIN CALCIUM
     Dosage: 5 MG, DAILY
     Route: 048
     Dates: start: 20190905
  9. FLONASE [Concomitant]
     Active Substance: FLUTICASONE PROPIONATE
     Dosage: UNK , 2X/DAY (ADMINISTER 2 SPRAYS INTO EACH NOSTRIL 2 (TWO) TIMES A DAY)
     Route: 045
     Dates: start: 20190919
  10. SANCTURA XR [Concomitant]
     Active Substance: TROSPIUM CHLORIDE
     Dosage: 60 MG, 1X/DAY(TAKE 1 CAPSULE (60 MG TOTAL) BY MOUTH EVERY MORNING BEFORE BREAKFAST)
     Route: 048
     Dates: start: 20190814
  11. YUVAFEM [Concomitant]
     Active Substance: ESTRADIOL HEMIHYDRATE
     Dosage: 10 UG, 2X/WEEK (INSERT 1 TABLET INTO THE VAGINA 2 (TWO) TIMES A WEEK)
     Route: 067
     Dates: start: 20180802
  12. COZAAR [Concomitant]
     Active Substance: LOSARTAN POTASSIUM
     Dosage: 25 MG, DAILY
     Route: 048
     Dates: start: 20190819
  13. PHENERGAN [Concomitant]
     Active Substance: PROMETHAZINE HYDROCHLORIDE
     Indication: VOMITING
  14. CARTIA XT [Concomitant]
     Active Substance: DILTIAZEM HYDROCHLORIDE
     Dosage: 300 MG, DAILY
     Route: 048
     Dates: start: 20190121
  15. ZYRTEC [Concomitant]
     Active Substance: CETIRIZINE HYDROCHLORIDE
     Dosage: 10 MG, DAILY
     Route: 048
  16. DIFLUCAN [Concomitant]
     Active Substance: FLUCONAZOLE
     Dosage: 150 MG, UNK(1 TABLET BY MOUTH AS DIRECTED MAY REPEAT DOSE IN 3-4 DAYS IF NO IMPROVEMENT OF SYMPTOM)
     Dates: start: 20190819
  17. PROTONIX [Concomitant]
     Active Substance: PANTOPRAZOLE SODIUM
     Dosage: 40 MG, DAILY (TAKE 1 TABLET (40 MG TOTAL) BY MOUTH DAILY)
     Route: 048
     Dates: start: 20190806
  18. ACTONEL [Concomitant]
     Active Substance: RISEDRONATE SODIUM
     Dosage: 35 MG, WEEKLY(TAKE 1 TABLET (35 MG TOTAL) BY MOUTH ONCE A WEEK. WITH WATER ON EMPTY STOMACH)
     Route: 048
     Dates: start: 20190820
  19. REQUIP [Concomitant]
     Active Substance: ROPINIROLE HYDROCHLORIDE
     Dosage: 0.5 MG, 1X/DAY(TAKE 1 TABLET (0.5 MG TOTAL) BY MOUTH AT BEDTIME)
     Route: 048
     Dates: start: 20190627
  20. KENALOG [Concomitant]
     Active Substance: TRIAMCINOLONE ACETONIDE
     Indication: PRURITUS
     Dosage: UNK UNK, 2X/DAY (APPLY TWICE DAILY TO ITCHING AREAS FOR A MAXIMUM OF 2 WEEKS PER MONTH)
     Dates: start: 20180802
  21. CARDIZEM CD [Concomitant]
     Active Substance: DILTIAZEM HYDROCHLORIDE
     Dosage: 300 MG, DAILY
     Route: 048
     Dates: start: 20190121
  22. LAMICTAL [Concomitant]
     Active Substance: LAMOTRIGINE
     Dosage: 200 MG, DAILY
     Route: 048
     Dates: start: 20190627
  23. KENALOG [Concomitant]
     Active Substance: TRIAMCINOLONE ACETONIDE
     Dosage: UNK, AS NEEDED
  24. RELPAX [Suspect]
     Active Substance: ELETRIPTAN HYDROBROMIDE
     Dosage: 1 DF, AS NEEDED (40 MG TOTAL, DAILY AS NEEDED, MAY REPEAT DOSE ONCE IN 2 HOURS)
     Route: 048
     Dates: start: 20190701
  25. XANAX [Concomitant]
     Active Substance: ALPRAZOLAM
     Indication: ANXIETY
     Dosage: 1 MG, AS NEEDED (1 TABLET (1 MG TOTAL) BY MOUTH 2 (TWO) TIMES A DAY AS NEEDED)
     Route: 048
     Dates: start: 20190812
  26. VYVANSE [Concomitant]
     Active Substance: LISDEXAMFETAMINE DIMESYLATE
     Dosage: 70 MG, 1X/DAY(TAKE 1 CAPSULE (70 MG TOTAL) BY MOUTH EVERY MORNING.)
     Route: 048
     Dates: start: 20190830, end: 20190929
  27. VYVANSE [Concomitant]
     Active Substance: LISDEXAMFETAMINE DIMESYLATE
     Dosage: 70 MG, 1X/DAY(TAKE 1 CAPSULE (70 MG TOTAL) BY MOUTH EVERY MORNING.)
     Route: 048
     Dates: start: 20190731, end: 20190830
  28. ANTIVERT [Concomitant]
     Active Substance: MECLIZINE HYDROCHLORIDE
     Dosage: 25 MG, DAILY
     Route: 048
     Dates: start: 20190517
  29. MAXZIDE [Concomitant]
     Active Substance: HYDROCHLOROTHIAZIDE\TRIAMTERENE
     Dosage: 1 DF, DAILY (37.5-25 MG)
     Route: 048
     Dates: start: 20190801

REACTIONS (4)
  - Recalled product administered [Unknown]
  - Abdominal pain upper [Unknown]
  - Diarrhoea [Recovered/Resolved]
  - Frequent bowel movements [Not Recovered/Not Resolved]

NARRATIVE: CASE EVENT DATE: 20190828
